FAERS Safety Report 9048944 (Version 3)
Quarter: 2014Q4

REPORT INFORMATION
  Report Type: Report from Study
  Country: US (occurrence: US)
  Receive Date: 20130204
  Receipt Date: 20141008
  Transmission Date: 20150529
  Serious: Yes (Death, Hospitalization, Other)
  Sender: FDA-Public Use
  Company Number: US-ASTELLAS-2013US001210

PATIENT
  Age: 86 Year
  Sex: Male

DRUGS (2)
  1. ERLOTINIB [Suspect]
     Active Substance: ERLOTINIB
     Indication: LUNG NEOPLASM MALIGNANT
     Route: 048
     Dates: start: 200901
  2. ERLOTINIB [Suspect]
     Active Substance: ERLOTINIB
     Indication: RETROPERITONEAL CANCER

REACTIONS (5)
  - Cardiopulmonary failure [Fatal]
  - Pericardial effusion [Fatal]
  - Malaise [Unknown]
  - Shock [Fatal]
  - Sepsis [Fatal]

NARRATIVE: CASE EVENT DATE: 20130104
